FAERS Safety Report 5028032-3 (Version None)
Quarter: 2006Q2

REPORT INFORMATION
  Report Type: 
  Country: None (occurrence: None)
  Receive Date: 20060612
  Receipt Date: 20060606
  Transmission Date: 20061013
  Serious: No
  Sender: FDA-Public Use
  Company Number: FR-2005-001984

PATIENT
  Age: 43 Year
  Sex: Female
  Weight: 55 kg

DRUGS (1)
  1. MIRENA [Suspect]
     Indication: CONTRACEPTION
     Dosage: 20 UG  CONT INTRA-UTERINE
     Route: 015
     Dates: start: 20031118

REACTIONS (2)
  - CHEST PAIN [None]
  - CORONARY ARTERY DISEASE [None]
